FAERS Safety Report 6576417-6 (Version None)
Quarter: 2010Q1

REPORT INFORMATION
  Report Type: 
  Country: None (occurrence: None)
  Receive Date: 20100210
  Receipt Date: 20100202
  Transmission Date: 20100710
  Serious: Yes (Other)
  Sender: FDA-Public Use
  Company Number: JP-JNJFOC-20100111521

PATIENT
  Age: 54 Year
  Sex: Male

DRUGS (5)
  1. RISPERDAL [Suspect]
     Indication: DRUG USE FOR UNKNOWN INDICATION
     Dosage: 1 MG AFTER EACH MEAL, 1 MG BEFORE BEDTIME
     Route: 048
  2. RISPERDAL [Suspect]
     Dosage: 2 MG AFTER EACH MEAL, 1 MG BEFORE BEDTIME
     Route: 048
  3. ANTI-PARKINSON AGENTS [Concomitant]
     Indication: PARKINSONISM
     Route: 065
  4. AKINETON [Concomitant]
     Route: 048
  5. DIAZEPAM [Concomitant]
     Route: 048

REACTIONS (4)
  - DRUG INEFFECTIVE [None]
  - HALLUCINATION, AUDITORY [None]
  - INSOMNIA [None]
  - SOMNOLENCE [None]
